FAERS Safety Report 25376512 (Version 1)
Quarter: 2025Q2

REPORT INFORMATION
  Report Type: Report from Study
  Country: IN (occurrence: IN)
  Receive Date: 20250530
  Receipt Date: 20250530
  Transmission Date: 20250716
  Serious: Yes (Other)
  Sender: ALEXION PHARMACEUTICALS
  Company Number: IN-AstraZeneca-CH-00879120A

PATIENT
  Age: 36 Year
  Weight: 59 kg

DRUGS (1)
  1. DURVALUMAB [Suspect]
     Active Substance: DURVALUMAB
     Dosage: 1500 MILLIGRAM, Q3W

REACTIONS (4)
  - Neck pain [Unknown]
  - Pain in extremity [Unknown]
  - Cough [Unknown]
  - Neoplasm progression [Unknown]
